FAERS Safety Report 5857970-4 (Version None)
Quarter: 2008Q3

REPORT INFORMATION
  Report Type: 
  Country: None (occurrence: None)
  Receive Date: 20080826
  Receipt Date: 20080821
  Transmission Date: 20090109
  Serious: Yes (Life-Threatening, Hospitalization)
  Sender: FDA-Public Use
  Company Number: FR-WYE-G02040908

PATIENT
  Sex: Male
  Weight: 91 kg

DRUGS (4)
  1. TORISEL [Suspect]
     Indication: RENAL CANCER METASTATIC
     Dosage: 25 MG 1 TIME PER CYCLE
     Route: 042
     Dates: start: 20080611, end: 20080806
  2. TORISEL [Suspect]
     Dosage: 25 MG 1 TIME PER CYCLE
     Route: 042
     Dates: start: 20080813
  3. AVASTIN [Suspect]
     Indication: RENAL CANCER METASTATIC
     Dosage: 950 MG 1 TIME PER CYCLE
     Route: 042
     Dates: start: 20080611, end: 20080806
  4. AVASTIN [Suspect]
     Dosage: 950 MG 1 TIME PER CYCLE
     Route: 042
     Dates: start: 20080813

REACTIONS (1)
  - STAPHYLOCOCCAL SEPSIS [None]
